FAERS Safety Report 6934190-3 (Version None)
Quarter: 2010Q3

REPORT INFORMATION
  Report Type: 
  Country: None (occurrence: None)
  Receive Date: 20100820
  Receipt Date: 20100805
  Transmission Date: 20110219
  Serious: Yes (Other)
  Sender: FDA-Public Use
  Company Number: DE-PFIZER INC-2010081593

PATIENT

DRUGS (1)
  1. REVATIO [Suspect]
     Route: 048

REACTIONS (4)
  - ANGIOPATHY [None]
  - OXYGEN SATURATION DECREASED [None]
  - VASCULAR SHUNT [None]
  - VENTILATION PERFUSION MISMATCH [None]
